FAERS Safety Report 13399653 (Version 1)
Quarter: 2017Q2

REPORT INFORMATION
  Report Type: Spontaneous
  Country: US (occurrence: US)
  Receive Date: 20170404
  Receipt Date: 20170404
  Transmission Date: 20170830
  Serious: Yes (Other)
  Sender: FDA-Public Use
  Company Number: US-CIPLA LTD.-2017US05633

PATIENT

DRUGS (13)
  1. METHOTREXATE. [Suspect]
     Active Substance: METHOTREXATE
     Indication: OCULAR LYMPHOMA
     Dosage: 3.5 G/M2, OVER 2 H ON DAY 1
     Route: 042
  2. CYTARABINE. [Suspect]
     Active Substance: CYTARABINE
     Indication: DISEASE PROGRESSION
     Dosage: UNK
     Route: 037
  3. RITUXIMAB [Suspect]
     Active Substance: RITUXIMAB
     Dosage: UNK
     Route: 037
  4. VINCRISTINE [Suspect]
     Active Substance: VINCRISTINE
     Indication: OCULAR LYMPHOMA
     Dosage: 1.4 MG/M2 CAPPED AT 2 MG, ON DAY 1
     Route: 042
  5. PROCARBAZINE [Suspect]
     Active Substance: PROCARBAZINE
     Indication: OCULAR LYMPHOMA
     Dosage: 100 MG/M2/DAY, 7 DAYS WITH ODD CYCLES ONLY
     Route: 048
  6. RITUXIMAB [Suspect]
     Active Substance: RITUXIMAB
     Indication: OCULAR LYMPHOMA
     Dosage: 375 MG/M2, DAY 1
     Route: 042
  7. BUSULFAN. [Suspect]
     Active Substance: BUSULFAN
     Indication: DISEASE PROGRESSION
     Dosage: UNK
     Route: 065
  8. GEMCITABINE [Suspect]
     Active Substance: GEMCITABINE\GEMCITABINE HYDROCHLORIDE
     Indication: DISEASE PROGRESSION
     Dosage: UNK
     Route: 065
  9. METHOTREXATE. [Suspect]
     Active Substance: METHOTREXATE
     Indication: DISEASE PROGRESSION
     Dosage: UNK, SECOND LINE THERAPY
  10. RITUXIMAB [Suspect]
     Active Substance: RITUXIMAB
     Dosage: UNK, AS THIRD LINE TREATMENT
  11. RITUXIMAB [Suspect]
     Active Substance: RITUXIMAB
     Dosage: UNK, AS THIRD LINE TREATMENT
     Route: 037
  12. LEUCOVORIN. [Suspect]
     Active Substance: LEUCOVORIN
     Indication: OCULAR LYMPHOMA
     Dosage: UNK, RESCUE DOSE
     Route: 065
  13. MELPHALAN. [Suspect]
     Active Substance: MELPHALAN
     Indication: DISEASE PROGRESSION
     Dosage: UNK
     Route: 065

REACTIONS (1)
  - Disease progression [Recovered/Resolved]
